FAERS Safety Report 7401997-8 (Version None)
Quarter: 2011Q2

REPORT INFORMATION
  Report Type: 
  Country: None (occurrence: None)
  Receive Date: 20110408
  Receipt Date: 20110329
  Transmission Date: 20111010
  Serious: Yes (Hospitalization)
  Sender: FDA-Public Use
  Company Number: CH-PFIZER INC-2011076050

PATIENT
  Age: 54 Year
  Sex: Female

DRUGS (13)
  1. DUPHALAC [Concomitant]
     Dosage: 1 DOSAGE FORM DAILY
     Route: 048
     Dates: start: 20110219
  2. PANTOZOL [Suspect]
     Dosage: 20 MG, 3X/DAY
     Route: 048
     Dates: start: 20110219, end: 20110306
  3. CIPROXINE [Suspect]
     Indication: URINARY TRACT INFECTION
     Dosage: 500 MG, ALTERNATE DAY
     Route: 048
     Dates: start: 20110224, end: 20110302
  4. NIMOTOP [Suspect]
     Indication: SUBARACHNOID HAEMORRHAGE
     Dosage: 30 MG, 12 IN 1 DAY
     Route: 048
     Dates: start: 20110219, end: 20110304
  5. CONCOR [Concomitant]
     Indication: RENAL HYPERTENSION
     Dosage: 5 MG, 1X/DAY
     Route: 048
     Dates: start: 20110221
  6. NEPHROTRANS [Concomitant]
     Dosage: 500 MG, 3X/DAY
     Route: 048
  7. CALCIUM [Concomitant]
     Dosage: 500 MG, 3X/DAY
     Route: 048
  8. CONCOR [Concomitant]
     Dosage: 5 MG, 1X/DAY
     Route: 048
     Dates: start: 20110227
  9. PRAVASTATIN [Suspect]
     Dosage: 40 MG, 1X/DAY
     Route: 048
     Dates: start: 20110221, end: 20110228
  10. TEMGESIC ^ESSEX PHARMA^ [Suspect]
     Dosage: 0.4 MG, UNK
     Route: 048
     Dates: start: 20110222, end: 20110301
  11. RECORMON [Concomitant]
     Dosage: 1000 IU, WEEKLY
     Route: 058
  12. DAFALGAN [Suspect]
     Indication: PAIN
     Dosage: 1 G, 4 IN 1 DAY
     Route: 048
     Dates: start: 20110219, end: 20110226
  13. CLEXANE [Suspect]
     Dosage: 0.2 ML, 1X/DAY
     Route: 058
     Dates: start: 20110219

REACTIONS (4)
  - TRANSAMINASES INCREASED [None]
  - CHOLESTASIS [None]
  - LIVER DISORDER [None]
  - PANCREATIC ENZYMES INCREASED [None]
